FAERS Safety Report 5463879-0 (Version None)
Quarter: 2007Q3

REPORT INFORMATION
  Report Type: 
  Country: None (occurrence: None)
  Receive Date: 20070427
  Receipt Date: 20051026
  Transmission Date: 20080115
  Serious: Yes (Other)
  Sender: FDA-Public Use
  Company Number: 200511900BBE

PATIENT
  Age: 52 Year
  Sex: Female

DRUGS (7)
  1. IMMUNE GLOBULIN INTRAVENOUS (HUMAN) [Suspect]
     Indication: MULTIPLE MYELOMA
     Dosage: 35 GM;1X;IV
     Route: 042
     Dates: start: 20050311, end: 20050315
  2. TACROLIMUS [Concomitant]
  3. MYCOPHENOLATE MOFETIL [Concomitant]
  4. CORTICOSTEROIDS [Concomitant]
  5. LEVOFLOXACIN [Concomitant]
  6. GANCICLOVIR [Concomitant]
  7. RED BLOOD CELLS [Concomitant]

REACTIONS (1)
  - HAEMOLYSIS [None]
